FAERS Safety Report 9494061 (Version 1)
Quarter: 2013Q3

REPORT INFORMATION
  Report Type: Spontaneous
  Country: US (occurrence: None)
  Receive Date: 20130829
  Receipt Date: 20130829
  Transmission Date: 20140515
  Serious: No
  Sender: FDA-Public Use
  Company Number: None

PATIENT
  Age: 43 Year
  Sex: Male
  Weight: 99.79 kg

DRUGS (3)
  1. VENLAFAXINE HYDROCHLORIDE [Suspect]
     Indication: ANXIETY
     Dosage: 1 PILL  DAILY  BY MOUTH
     Route: 048
     Dates: start: 20100601, end: 20130801
  2. MULTI-VITAMIN [Concomitant]
  3. FISH OIL (OMEGA 3) [Concomitant]

REACTIONS (8)
  - Drug withdrawal syndrome [None]
  - Suicidal ideation [None]
  - Palpitations [None]
  - Vertigo [None]
  - Abnormal dreams [None]
  - Mood swings [None]
  - Tremor [None]
  - Cold sweat [None]
